FAERS Safety Report 19250927 (Version 8)
Quarter: 2022Q2

REPORT INFORMATION
  Report Type: Report from Study
  Country: IL (occurrence: IL)
  Receive Date: 20210513
  Receipt Date: 20220406
  Transmission Date: 20220721
  Serious: Yes (Death, Hospitalization)
  Sender: FDA-Public Use
  Company Number: IL-ABBVIE-21K-082-3900368-00

PATIENT
  Age: 73 Year
  Sex: Female
  Weight: 67 kg

DRUGS (18)
  1. VENCLEXTA [Suspect]
     Active Substance: VENETOCLAX
     Indication: Acute myeloid leukaemia
     Dosage: RAMP UP
     Route: 048
     Dates: start: 20200218, end: 20200219
  2. VENCLEXTA [Suspect]
     Active Substance: VENETOCLAX
     Dosage: RAMP UP
     Route: 048
     Dates: start: 20200220, end: 20200224
  3. VENCLEXTA [Suspect]
     Active Substance: VENETOCLAX
     Route: 048
     Dates: start: 20200225, end: 20200226
  4. JANUVIA [Concomitant]
     Active Substance: SITAGLIPTIN PHOSPHATE
     Indication: Diabetes mellitus
     Dates: start: 201501
  5. AUGMENTIN [Concomitant]
     Active Substance: AMOXICILLIN\CLAVULANATE POTASSIUM
     Indication: Hypertension
     Dates: start: 20200210, end: 20200224
  6. AUGMENTIN [Concomitant]
     Active Substance: AMOXICILLIN\CLAVULANATE POTASSIUM
     Indication: Prophylaxis
     Dates: start: 20200219, end: 20200222
  7. PRAVALIP [Concomitant]
     Indication: Blood cholesterol increased
     Dates: start: 20200203, end: 20200219
  8. PRAVALIP [Concomitant]
     Indication: Hypertension
  9. ELIQUIS [Concomitant]
     Active Substance: APIXABAN
     Indication: Anticoagulant therapy
     Dates: start: 201501
  10. METFORMIN [Concomitant]
     Active Substance: METFORMIN HYDROCHLORIDE
     Indication: Diabetes mellitus
     Dates: start: 201501
  11. BISOPROLOL FUMARATE [Concomitant]
     Active Substance: BISOPROLOL FUMARATE
     Indication: Essential hypertension
     Dates: start: 201901
  12. RAMIPRIL [Concomitant]
     Active Substance: RAMIPRIL
     Indication: Essential hypertension
     Dates: start: 201901
  13. LERCANIDIPINE [Concomitant]
     Active Substance: LERCANIDIPINE
     Indication: Essential hypertension
     Dates: start: 201901
  14. ALLOPURINOL [Concomitant]
     Active Substance: ALLOPURINOL
     Indication: Prophylaxis
     Dates: start: 20200218, end: 20200219
  15. SODIUM CHLORIDE [Concomitant]
     Active Substance: SODIUM CHLORIDE
     Indication: Product used for unknown indication
     Route: 065
     Dates: start: 20200220, end: 20200224
  16. POTASSIUM PHOSPHATE [Concomitant]
     Active Substance: POTASSIUM PHOSPHATE
     Indication: Product used for unknown indication
     Route: 065
     Dates: start: 20200220
  17. VORTIMAL [Concomitant]
     Indication: Product used for unknown indication
     Route: 065
     Dates: start: 20200221
  18. PIPERACILIN [Concomitant]
     Indication: Infection prophylaxis
     Route: 065
     Dates: start: 20200220

REACTIONS (3)
  - Infection [Fatal]
  - Delirium [Recovered/Resolved]
  - Pyrexia [Recovered/Resolved]

NARRATIVE: CASE EVENT DATE: 20200201
